FAERS Safety Report 8002272-3 (Version None)
Quarter: 2011Q4

REPORT INFORMATION
  Report Type: 
  Country: None (occurrence: None)
  Receive Date: 20111222
  Receipt Date: 20110210
  Transmission Date: 20120403
  Serious: No
  Sender: FDA-Public Use
  Company Number: US-GLAXOSMITHKLINE-A0912859A

PATIENT
  Age: 54 Year
  Sex: Female

DRUGS (2)
  1. NICORETTE [Suspect]
     Indication: EX-TOBACCO USER
     Dates: start: 20110107, end: 20110209
  2. POTASSIUM CL [Concomitant]

REACTIONS (1)
  - DEHYDRATION [None]
